FAERS Safety Report 9639979 (Version 1)
Quarter: 2013Q4

REPORT INFORMATION
  Report Type: Spontaneous
  Country: US (occurrence: US)
  Receive Date: 20131023
  Receipt Date: 20131023
  Transmission Date: 20140711
  Serious: No
  Sender: FDA-Public Use
  Company Number: US-ROXANE LABORATORIES, INC.-2013-RO-01722RO

PATIENT
  Sex: Female

DRUGS (2)
  1. CALCIUM CARBONATE [Suspect]
     Indication: MINERAL SUPPLEMENTATION
     Route: 048
  2. WATER PILL [Concomitant]

REACTIONS (2)
  - Blood calcium decreased [Not Recovered/Not Resolved]
  - Product quality issue [Not Recovered/Not Resolved]
